FAERS Safety Report 8632334 (Version 3)
Quarter: 2014Q2

REPORT INFORMATION
  Report Type: Spontaneous
  Country: US (occurrence: US)
  Receive Date: 20120625
  Receipt Date: 20140619
  Transmission Date: 20141212
  Serious: Yes (Hospitalization)
  Sender: FDA-Public Use
  Company Number: US-BAYER-2012-060809

PATIENT
  Age: 19 Year
  Sex: Female
  Weight: 111 kg

DRUGS (8)
  1. YAZ [Suspect]
     Indication: ACNE
     Dosage: UNK
     Dates: start: 201108, end: 201112
  2. GIANVI [Suspect]
     Dosage: UNK
     Dates: start: 2011
  3. CITALOPRAM [Concomitant]
     Dosage: 20 MG, UNK
     Dates: start: 20111126
  4. AZITHROMYCIN [Concomitant]
     Dosage: UNK
     Dates: start: 20111203
  5. CELEXA [Concomitant]
     Dosage: UNK
     Dates: start: 20111203
  6. MYCOLOG [Concomitant]
     Dosage: UNK
     Dates: start: 20111203
  7. VITAMINS NOS [Concomitant]
  8. ALBUTEROL INHALER [Concomitant]
     Indication: COUGH

REACTIONS (4)
  - Pulmonary embolism [None]
  - Injury [None]
  - Pain [None]
  - Pain [None]
